FAERS Safety Report 24611010 (Version 3)
Quarter: 2025Q2

REPORT INFORMATION
  Report Type: Spontaneous
  Country: US (occurrence: US)
  Receive Date: 20241112
  Receipt Date: 20250620
  Transmission Date: 20250716
  Serious: No
  Sender: SANOFI AVENTIS
  Company Number: US-SA-2024SA323093

PATIENT
  Age: 71 Year
  Sex: Female

DRUGS (24)
  1. DUPIXENT [Suspect]
     Active Substance: DUPILUMAB
     Indication: Dermatitis atopic
     Route: 058
     Dates: start: 20210726
  2. DUPIXENT [Suspect]
     Active Substance: DUPILUMAB
     Indication: Dermatitis
  3. ERYTHROMYCIN [Concomitant]
     Active Substance: ERYTHROMYCIN
  4. PREDNISONE [Concomitant]
     Active Substance: PREDNISONE
  5. SYNTHROID [Concomitant]
     Active Substance: LEVOTHYROXINE SODIUM
  6. KETOTIFEN [Concomitant]
     Active Substance: KETOTIFEN
  7. LIOTHYRONINE [Concomitant]
     Active Substance: LIOTHYRONINE
  8. CLOBETASOL [Concomitant]
     Active Substance: CLOBETASOL
  9. SINGULAIR [Concomitant]
     Active Substance: MONTELUKAST SODIUM
  10. ALBUTEROL [Concomitant]
     Active Substance: ALBUTEROL
  11. HYDROXYZINE [Concomitant]
     Active Substance: HYDROXYZINE HYDROCHLORIDE
  12. FLUTICASONE [Concomitant]
     Active Substance: FLUTICASONE
  13. AZITHROMYCIN [Concomitant]
     Active Substance: AZITHROMYCIN
  14. QUERCETIN [Concomitant]
     Active Substance: QUERCETIN
  15. MAGNESIUM [Concomitant]
     Active Substance: MAGNESIUM
  16. AZELASTINE [Concomitant]
     Active Substance: AZELASTINE
  17. VALACYCLOVIR [Concomitant]
     Active Substance: VALACYCLOVIR HYDROCHLORIDE
  18. AMOXICILLIN [Concomitant]
     Active Substance: AMOXICILLIN
  19. MESALAMINE [Concomitant]
     Active Substance: MESALAMINE
  20. TRIAMCINOLONE [Concomitant]
     Active Substance: TRIAMCINOLONE
  21. EVIVA [Concomitant]
  22. PREBIOTICS NOS [Concomitant]
  23. MUCUS RELIEF [Concomitant]
     Active Substance: GUAIFENESIN
  24. OLEA EUROPAEA LEAF [Concomitant]
     Active Substance: OLEA EUROPAEA LEAF

REACTIONS (11)
  - Ovarian cyst [Unknown]
  - Fear of injection [Unknown]
  - Injection site mass [Unknown]
  - Skin swelling [Unknown]
  - Skin tightness [Unknown]
  - Injection site haemorrhage [Unknown]
  - Injection site pain [Unknown]
  - Injection site bruising [Unknown]
  - Injection site swelling [Unknown]
  - Abdominal operation [Unknown]
  - Product use in unapproved indication [Unknown]

NARRATIVE: CASE EVENT DATE: 20210726
